FAERS Safety Report 5533390-7 (Version None)
Quarter: 2007Q4

REPORT INFORMATION
  Report Type: 
  Country: None (occurrence: None)
  Receive Date: 20071204
  Receipt Date: 20071123
  Transmission Date: 20080405
  Serious: Yes (Hospitalization)
  Sender: FDA-Public Use
  Company Number: FR-JNJFOC-20061205204

PATIENT
  Age: 47 Year
  Sex: Female
  Weight: 45 kg

DRUGS (4)
  1. REMICADE [Suspect]
     Route: 042
  2. REMICADE [Suspect]
     Indication: RHEUMATOID ARTHRITIS
     Route: 042
  3. REMICADE [Suspect]
     Indication: SJOGREN'S SYNDROME
     Route: 042
  4. METHOTREXATE [Concomitant]
     Route: 048

REACTIONS (2)
  - CUTANEOUS TUBERCULOSIS [None]
  - TUBERCULOSIS [None]
